FAERS Safety Report 12253838 (Version 4)
Quarter: 2021Q3

REPORT INFORMATION
  Report Type: Spontaneous
  Country: FR (occurrence: FR)
  Receive Date: 20160411
  Receipt Date: 20210914
  Transmission Date: 20211014
  Serious: Yes (Hospitalization, Congenital Anomaly, Other)
  Sender: FDA-Public Use
  Company Number: FR-ABBVIE-16P-056-1601533-00

PATIENT
  Sex: Female

DRUGS (2)
  1. DEPAKINE CHRONO [Suspect]
     Active Substance: VALPROATE SODIUM
     Route: 064
  2. DEPAKINE CHRONO [Suspect]
     Active Substance: VALPROATE SODIUM
     Indication: MATERNAL EXPOSURE TIMING UNSPECIFIED
     Route: 064

REACTIONS (70)
  - Dysmorphism [Unknown]
  - Dyspraxia [Unknown]
  - Enuresis [Unknown]
  - Right ventricular hypertrophy [Unknown]
  - Sensorimotor disorder [Unknown]
  - Rib synostosis [Unknown]
  - Congenital nose malformation [Not Recovered/Not Resolved]
  - Strabismus congenital [Unknown]
  - Fine motor skill dysfunction [Unknown]
  - Atrial septal defect [Unknown]
  - Memory impairment [Unknown]
  - Lip disorder [Unknown]
  - Dislocation of vertebra [Not Recovered/Not Resolved]
  - Congenital nipple anomaly [Unknown]
  - Autism spectrum disorder [Unknown]
  - Multiple congenital abnormalities [Unknown]
  - Sluggishness [Unknown]
  - Oropharyngeal discomfort [Unknown]
  - Urinary incontinence [Unknown]
  - Affect lability [Unknown]
  - Dysgraphia [Unknown]
  - Autism spectrum disorder [Not Recovered/Not Resolved]
  - Foetal exposure during pregnancy [Unknown]
  - Congenital hand malformation [Not Recovered/Not Resolved]
  - Foetal anticonvulsant syndrome [Unknown]
  - Hand-eye coordination impaired [Unknown]
  - Congenital scoliosis [Unknown]
  - Dacryostenosis acquired [Unknown]
  - Atelectasis neonatal [Unknown]
  - Pulmonary valve stenosis [Unknown]
  - Camptodactyly congenital [Unknown]
  - Dysgraphia [Unknown]
  - Psychomotor retardation [Unknown]
  - Spine malformation [Unknown]
  - Gingival hypertrophy [Unknown]
  - Affect lability [Unknown]
  - Learning disorder [Not Recovered/Not Resolved]
  - Adenoiditis [Unknown]
  - Foot deformity [Unknown]
  - Language disorder [Unknown]
  - Congenital abdominal hernia [Unknown]
  - Heart disease congenital [Unknown]
  - Rhinitis [Unknown]
  - Congenital hand malformation [Not Recovered/Not Resolved]
  - Dyslexia [Unknown]
  - Foetal distress syndrome [Unknown]
  - Eating disorder [Unknown]
  - Cardiac failure [Unknown]
  - Musculoskeletal stiffness [Unknown]
  - Astigmatism [Unknown]
  - Postoperative thoracic procedure complication [Unknown]
  - Congenital hand malformation [Unknown]
  - Femur fracture [Unknown]
  - Hypotelorism of orbit [Not Recovered/Not Resolved]
  - Tooth malformation [Unknown]
  - Low set ears [Unknown]
  - Sinus tachycardia [Unknown]
  - Reading disorder [Unknown]
  - Gastrooesophageal reflux disease [Unknown]
  - Enuresis [Not Recovered/Not Resolved]
  - Craniofacial deformity [Unknown]
  - Clinodactyly [Unknown]
  - Hypotelorism of orbit [Not Recovered/Not Resolved]
  - Congenital myopia [Unknown]
  - Ventricular hypoplasia [Unknown]
  - Disturbance in social behaviour [Unknown]
  - Enuresis [Unknown]
  - Balance disorder [Unknown]
  - Reading disorder [Unknown]
  - Noonan syndrome [Unknown]

NARRATIVE: CASE EVENT DATE: 2000
